FAERS Safety Report 9728124 (Version 1)
Quarter: 2013Q4

REPORT INFORMATION
  Report Type: Spontaneous
  Country: GB (occurrence: None)
  Receive Date: 20131127
  Receipt Date: 20131127
  Transmission Date: 20140711
  Serious: Yes (Hospitalization)
  Sender: FDA-Public Use
  Company Number: 2030127

PATIENT
  Age: 42 Year
  Sex: Female
  Weight: 63.2 kg

DRUGS (9)
  1. DOCETAXEL [Suspect]
     Indication: HER-2 POSITIVE BREAST CANCER
     Route: 042
     Dates: start: 20120824
  2. TRASTUZUMAB [Suspect]
     Indication: HER-2 POSITIVE BREAST CANCER
     Dosage: 8 MG/M2 MILLIGRAM(S)/SQ. METER (1 WEEK)
     Route: 042
     Dates: start: 20120824, end: 20120824
  3. CHLORPHENAMINE [Concomitant]
  4. BENZYDAMINE HYDROCHLRIDE) [Concomitant]
  5. PARACETAMOL [Concomitant]
  6. CODEINE PHOSPHATE [Concomitant]
  7. IBUPROFEN [Concomitant]
  8. METOCLOPRAMIDE [Concomitant]
  9. PERTUZUMAB [Concomitant]

REACTIONS (1)
  - Neutropenic sepsis [None]
